FAERS Safety Report 11682492 (Version 1)
Quarter: 2015Q4

REPORT INFORMATION
  Report Type: Spontaneous
  Country: FR (occurrence: FR)
  Receive Date: 20151029
  Receipt Date: 20151029
  Transmission Date: 20160304
  Serious: Yes (Other)
  Sender: FDA-Public Use
  Company Number: FR-009507513-1510FRA011327

PATIENT
  Age: 65 Year
  Sex: Male

DRUGS (1)
  1. EZETROL [Suspect]
     Active Substance: EZETIMIBE
     Indication: HYPERCHOLESTEROLAEMIA
     Dosage: START DATE: FOR A LONG TIME
     Route: 048

REACTIONS (2)
  - Cholecystectomy [Unknown]
  - Thrombosis [Unknown]

NARRATIVE: CASE EVENT DATE: 201501
